FAERS Safety Report 13229792 (Version 1)
Quarter: 2017Q1

REPORT INFORMATION
  Report Type: Report from Study
  Country: US (occurrence: US)
  Receive Date: 20170214
  Receipt Date: 20170214
  Transmission Date: 20170428
  Serious: Yes (Other)
  Sender: FDA-Public Use
  Company Number: US-ROCHE-1892622

PATIENT
  Sex: Male

DRUGS (1)
  1. TAMIFLU [Suspect]
     Active Substance: OSELTAMIVIR PHOSPHATE
     Indication: INFLUENZA
     Dosage: ONE DOSE TWICE A DAY ;ONGOING: NO
     Route: 048
     Dates: start: 20170130, end: 20170202

REACTIONS (3)
  - Sleep terror [Recovered/Resolved]
  - Hallucination [Unknown]
  - Anxiety [Not Recovered/Not Resolved]
